FAERS Safety Report 5042325-5 (Version None)
Quarter: 2006Q2

REPORT INFORMATION
  Report Type: 
  Country: None (occurrence: None)
  Receive Date: 20060601
  Receipt Date: 20060331
  Transmission Date: 20061013
  Serious: No
  Sender: FDA-Public Use
  Company Number: 2006PV011264

PATIENT
  Age: 64 Year
  Sex: Male
  Weight: 99.3377 kg

DRUGS (2)
  1. BYETTA [Suspect]
     Indication: DIABETES MELLITUS NON-INSULIN-DEPENDENT
     Dosage: 5  MCG; BID; SC
     Route: 058
     Dates: start: 20060306
  2. ACTOPLUS MET [Concomitant]

REACTIONS (2)
  - MUSCLE TIGHTNESS [None]
  - WEIGHT DECREASED [None]
